FAERS Safety Report 9319978 (Version 1)
Quarter: 2013Q2

REPORT INFORMATION
  Report Type: Report from Study
  Country: VE (occurrence: VE)
  Receive Date: 20130530
  Receipt Date: 20130530
  Transmission Date: 20140414
  Serious: Yes (Death, Hospitalization, Other)
  Sender: FDA-Public Use
  Company Number: VE-ABBOTT-13P-178-1096292-00

PATIENT
  Age: 76 Year
  Sex: Female
  Weight: 70 kg

DRUGS (1)
  1. HUMIRA [Suspect]
     Indication: RHEUMATOID ARTHRITIS
     Dosage: ONE PRE-FILLED SYRINGE EVERY 15 DAYS
     Route: 058
     Dates: start: 20110831, end: 201205

REACTIONS (2)
  - Respiratory arrest [Fatal]
  - Bladder disorder [Not Recovered/Not Resolved]
